FAERS Safety Report 7441841-6 (Version None)
Quarter: 2011Q2

REPORT INFORMATION
  Report Type: 
  Country: None (occurrence: None)
  Receive Date: 20110428
  Receipt Date: 20090930
  Transmission Date: 20111010
  Serious: Yes (Death, Other)
  Sender: FDA-Public Use
  Company Number: US-BAYER-2011-005531

PATIENT
  Age: 72 Year
  Sex: Male
  Weight: 86.168 kg

DRUGS (27)
  1. TRASYLOL [Suspect]
     Dosage: 50CC/HR
     Route: 042
     Dates: start: 20051023, end: 20051023
  2. NITROGLYCERIN [Concomitant]
     Dosage: 50MG/250CC
     Route: 042
  3. MANNITOL [Concomitant]
     Route: 042
  4. PANCURONIUM BROMIDE [Concomitant]
     Route: 042
  5. DOPAMINE HCL [Concomitant]
     Dosage: 400MG/250CC
     Route: 042
  6. DILAUDID [Concomitant]
     Dosage: UNK
     Route: 042
     Dates: start: 20051024
  7. ZOSYN [Concomitant]
     Dosage: UNK
     Route: 042
     Dates: start: 20051027
  8. SUFENTANIL [Concomitant]
     Route: 042
  9. PHENYLEPHRINE [PHENYLEPHRINE] [Concomitant]
     Dosage: UNK
     Route: 042
  10. INSULIN [INSULIN] [Concomitant]
  11. HEPARIN [Concomitant]
     Dosage: UNK
     Route: 042
  12. VANCOMYCIN [Concomitant]
     Route: 042
  13. LIDOCAINE [Concomitant]
     Dosage: UNK
     Route: 042
  14. ATIVAN [Concomitant]
     Dosage: UNK
     Route: 042
     Dates: start: 20051030
  15. TRASYLOL [Suspect]
     Indication: CORONARY ARTERY BYPASS
     Dosage: 200CC
     Route: 042
     Dates: start: 20051023, end: 20051023
  16. MIDAZOLAM [Concomitant]
     Route: 042
  17. MILRINONE [Concomitant]
     Dosage: 20MG/100CC
     Route: 042
  18. PHENYLEPHRINE HCL [Concomitant]
     Route: 042
  19. PROTAMINE SULFATE [Concomitant]
     Route: 042
  20. PLATELETS [Concomitant]
     Dosage: 275 ML, UNK
     Route: 042
     Dates: start: 20051023
  21. LOPRESSOR [Concomitant]
  22. HYDRALAZINE [Concomitant]
     Dosage: UNK
     Route: 042
     Dates: start: 20051025
  23. NITROGLYCERIN [Concomitant]
  24. PROPOFOL [Concomitant]
     Route: 042
  25. RED BLOOD CELLS [Concomitant]
     Dosage: 1 U, UNK
     Dates: start: 20051023
  26. LASIX [Concomitant]
     Dosage: UNK
     Route: 042
     Dates: start: 20051026
  27. LEVAQUIN [Concomitant]
     Dosage: UNK
     Route: 042
     Dates: start: 20051027

REACTIONS (21)
  - DEATH [None]
  - RENAL FAILURE [None]
  - RENAL IMPAIRMENT [None]
  - STRESS [None]
  - NERVOUSNESS [None]
  - PAIN [None]
  - FEAR OF DEATH [None]
  - SHOCK [None]
  - ISCHAEMIC STROKE [None]
  - RENAL INJURY [None]
  - FEAR [None]
  - INJURY [None]
  - DEPRESSION [None]
  - CARDIAC FAILURE [None]
  - EMOTIONAL DISTRESS [None]
  - ANHEDONIA [None]
  - UNEVALUABLE EVENT [None]
  - MENTAL DISORDER [None]
  - MULTI-ORGAN FAILURE [None]
  - ANXIETY [None]
  - RENAL DISORDER [None]
